FAERS Safety Report 19519609 (Version 1)
Quarter: 2021Q3

REPORT INFORMATION
  Report Type: Spontaneous
  Country: CN (occurrence: CN)
  Receive Date: 20210712
  Receipt Date: 20210712
  Transmission Date: 20211014
  Serious: Yes (Other)
  Sender: FDA-Public Use
  Company Number: ALC2021CN004123

PATIENT
  Age: 51 Year
  Sex: Male
  Weight: 62 kg

DRUGS (2)
  1. FLUORESCEIN SODIUM 10% [Suspect]
     Active Substance: FLUORESCEIN SODIUM
     Indication: FUNDOSCOPY
     Dosage: 0.5 G, QD
     Route: 042
     Dates: start: 20210624, end: 20210624
  2. SODIUM CHLORIDE. [Concomitant]
     Active Substance: SODIUM CHLORIDE
     Indication: MEDICATION DILUTION
     Dosage: 10 ML, QD
     Route: 042
     Dates: start: 20210624, end: 20210624

REACTIONS (2)
  - Rash [Recovering/Resolving]
  - Hypoaesthesia oral [Recovering/Resolving]

NARRATIVE: CASE EVENT DATE: 20210624
